FAERS Safety Report 9251946 (Version 1)
Quarter: 2013Q2

REPORT INFORMATION
  Report Type: Report from Study
  Country: AR (occurrence: AR)
  Receive Date: 20130424
  Receipt Date: 20130424
  Transmission Date: 20140414
  Serious: Yes (Other)
  Sender: FDA-Public Use
  Company Number: PHHY2013AR040065

PATIENT
  Sex: Female

DRUGS (3)
  1. ONBREZ [Suspect]
     Indication: CHRONIC OBSTRUCTIVE PULMONARY DISEASE
     Dosage: UNK
     Dates: start: 201211
  2. ONBREZ [Suspect]
     Indication: EMPHYSEMA
  3. OXYGEN [Concomitant]

REACTIONS (3)
  - Wrist fracture [Recovering/Resolving]
  - Limb injury [Recovering/Resolving]
  - Off label use [Unknown]
